FAERS Safety Report 15154550 (Version 1)
Quarter: 2018Q3

REPORT INFORMATION
  Report Type: Spontaneous
  Country: FR (occurrence: FR)
  Receive Date: 20180717
  Receipt Date: 20180717
  Transmission Date: 20181010
  Serious: Yes (Other)
  Sender: FDA-Public Use
  Company Number: PHHY2018FR042784

PATIENT

DRUGS (21)
  1. ENDOXAN [Suspect]
     Active Substance: CYCLOPHOSPHAMIDE
     Dosage: 6000 MG/M2, HIGH DOSE CYCLE 1 AT DAY 1
     Route: 065
  2. ENDOXAN [Suspect]
     Active Substance: CYCLOPHOSPHAMIDE
     Dosage: 4000 MG/M2, CYCLE 2 AT DAY 1
     Route: 065
  3. VINCRISTINE [Suspect]
     Active Substance: VINCRISTINE
     Dosage: 2 MG, DAY 1, CYCLE 3
     Route: 065
  4. PREDNISONE. [Suspect]
     Active Substance: PREDNISONE
     Indication: NON-HODGKIN^S LYMPHOMA
     Dosage: DAY 1 TO DAY 4 (4 CYCLES)
     Route: 065
  5. ENDOXAN [Suspect]
     Active Substance: CYCLOPHOSPHAMIDE
     Indication: NON-HODGKIN^S LYMPHOMA
     Dosage: 500 MG/M2, DAY 1
     Route: 065
  6. DOXORUBICIN [Suspect]
     Active Substance: DOXORUBICIN
     Dosage: 75 MG/M2, DAY 1, CYCLE 2
     Route: 065
  7. PENICILLIN G [Concomitant]
     Active Substance: PENICILLIN G
     Indication: PROPHYLAXIS
     Dosage: 2 OT, BID
     Route: 048
  8. ENDOXAN [Suspect]
     Active Substance: CYCLOPHOSPHAMIDE
     Dosage: 4000 MG/M2, CYCLE 4 AT DAY 1
     Route: 065
  9. CIPROFLOXACIN. [Concomitant]
     Active Substance: CIPROFLOXACIN
     Indication: PROPHYLAXIS
     Dosage: 1500 MG, QD
     Route: 048
  10. VINCRISTINE [Suspect]
     Active Substance: VINCRISTINE
     Indication: NON-HODGKIN^S LYMPHOMA
     Dosage: 2 MG, DAY 1, CYCLE 1
     Route: 065
  11. VINCRISTINE [Suspect]
     Active Substance: VINCRISTINE
     Dosage: 2 MG, DAY 1, CYCLE 4
     Route: 065
  12. DOXORUBICIN [Suspect]
     Active Substance: DOXORUBICIN
     Indication: NON-HODGKIN^S LYMPHOMA
     Dosage: 75 MG/M2, (DAY 1, CYCLE 1)
     Route: 065
  13. DOXORUBICIN [Suspect]
     Active Substance: DOXORUBICIN
     Dosage: 75 MG/M2, DAY 1, CYCLE 3
     Route: 065
  14. DOXORUBICIN [Suspect]
     Active Substance: DOXORUBICIN
     Dosage: 75 MG/M2, DAY 1, CYCLE 4
     Route: 065
  15. ETOPOSIDE. [Suspect]
     Active Substance: ETOPOSIDE
     Indication: NON-HODGKIN^S LYMPHOMA
     Dosage: 250 MG/M2, (DAY 1 AND DAY 2)
     Route: 065
  16. FILGRASTIM [Concomitant]
     Active Substance: FILGRASTIM
     Indication: PRODUCT USED FOR UNKNOWN INDICATION
     Dosage: STARTED AT DAY 6 FOR MINIMUM OF 7 DAYS
     Route: 058
  17. METHOTREXATE. [Concomitant]
     Active Substance: METHOTREXATE
     Indication: PROPHYLAXIS
     Dosage: 12 MG/M2, (C1 AND C2 IN OUTPATIENT SETTING AND C3 AND C4 IN HOSPITAL)
     Route: 037
  18. ENDOXAN [Suspect]
     Active Substance: CYCLOPHOSPHAMIDE
     Dosage: 4000 MG/M2, CYCLE 3 AT DAY 1
     Route: 065
  19. UROMITEXAN [Suspect]
     Active Substance: MESNA
     Indication: NON-HODGKIN^S LYMPHOMA
     Dosage: INFUSED BEFORE, AND 4 HOURS AND 8 H AFTER EACH CYCLOPHOSPHAMIDE INFUSION
     Route: 041
  20. VINCRISTINE [Suspect]
     Active Substance: VINCRISTINE
     Dosage: 2 MG, DAY 1, CYCLE 2
     Route: 065
  21. CISPLATIN. [Suspect]
     Active Substance: CISPLATIN
     Indication: NON-HODGKIN^S LYMPHOMA
     Dosage: 100 MG/M2, DAY 1
     Route: 065

REACTIONS (1)
  - Nephropathy toxic [Recovered/Resolved]
